FAERS Safety Report 25505350 (Version 1)
Quarter: 2025Q3

REPORT INFORMATION
  Report Type: Spontaneous
  Country: US (occurrence: US)
  Receive Date: 20250702
  Receipt Date: 20250702
  Transmission Date: 20251021
  Serious: No
  Sender: CHATTEM
  Company Number: US-OPELLA-2025OHG019619

PATIENT

DRUGS (1)
  1. XYZAL [Suspect]
     Active Substance: LEVOCETIRIZINE DIHYDROCHLORIDE
     Indication: Product used for unknown indication

REACTIONS (3)
  - Skin haemorrhage [Unknown]
  - Drug withdrawal syndrome [Unknown]
  - Pruritus [Unknown]
